FAERS Safety Report 19222911 (Version 1)
Quarter: 2021Q2

REPORT INFORMATION
  Report Type: Report from Study
  Country: US (occurrence: US)
  Receive Date: 20210505
  Receipt Date: 20210505
  Transmission Date: 20210717
  Serious: Yes (Hospitalization)
  Sender: FDA-Public Use
  Company Number: US-ROCHE-2141426

PATIENT
  Age: 53 Year
  Sex: Female
  Weight: 76.6 kg

DRUGS (55)
  1. ATEZOLIZUMAB. [Suspect]
     Active Substance: ATEZOLIZUMAB
     Indication: OVARIAN CANCER
     Dosage: DATE OF MOST RECENT DOSE OF ATEZOLIZUMAB PRIOR TO THE ONSET OF FEVER: 24/MAY/2018
     Route: 042
     Dates: start: 20180412
  2. NACL [Concomitant]
     Active Substance: SODIUM CHLORIDE
     Dosage: 0.9% 250 ML
     Route: 040
     Dates: start: 20180604, end: 20180604
  3. LOVENOX [Concomitant]
     Active Substance: ENOXAPARIN SODIUM
     Dates: start: 20180603, end: 20180607
  4. MAGNESIUM HYDROXIDE. [Concomitant]
     Active Substance: MAGNESIUM HYDROXIDE
     Dosage: 400 MG/5 ML, 30 ML
     Route: 065
     Dates: start: 20180604, end: 20180607
  5. CLARITIN [Concomitant]
     Active Substance: LORATADINE
     Dates: start: 20180430
  6. REQUIP [Concomitant]
     Active Substance: ROPINIROLE HYDROCHLORIDE
     Dosage: AT BEDTIME
     Route: 065
     Dates: start: 20180604, end: 20180607
  7. IBUPROFEN. [Concomitant]
     Active Substance: IBUPROFEN
     Indication: PROCEDURAL PAIN
     Dates: start: 20180302
  8. DICLOXACILLIN [Concomitant]
     Active Substance: DICLOXACILLIN
     Indication: INFECTION PROPHYLAXIS
  9. MUCINEX [Concomitant]
     Active Substance: GUAIFENESIN
     Route: 065
     Dates: start: 20180606, end: 20180607
  10. POTASSIUM CHLORIDE. [Concomitant]
     Active Substance: POTASSIUM CHLORIDE
     Route: 065
     Dates: start: 20180606, end: 20180606
  11. MOTRIN [Concomitant]
     Active Substance: IBUPROFEN
     Route: 065
     Dates: start: 20180604, end: 20180607
  12. ASPIRIN. [Concomitant]
     Active Substance: ASPIRIN
     Indication: ANTICOAGULANT THERAPY
     Route: 065
     Dates: start: 20180604, end: 20180607
  13. ASPIRIN. [Concomitant]
     Active Substance: ASPIRIN
     Dates: start: 20180603, end: 20180607
  14. DECADRON [Concomitant]
     Active Substance: DEXAMETHASONE
     Indication: CHEMOTHERAPY SIDE EFFECT PROPHYLAXIS
     Route: 042
     Dates: start: 20180412
  15. VALACYCLOVIR [Concomitant]
     Active Substance: VALACYCLOVIR HYDROCHLORIDE
     Indication: ORAL HERPES
  16. BACTROBAN [Concomitant]
     Active Substance: MUPIROCIN\MUPIROCIN CALCIUM
     Indication: EPISTAXIS
     Dates: start: 20180103
  17. TYLENOL [Concomitant]
     Active Substance: ACETAMINOPHEN
     Dates: start: 20180605, end: 20180605
  18. TYLENOL [Concomitant]
     Active Substance: ACETAMINOPHEN
     Dates: start: 20180302
  19. BISMATROL [Concomitant]
     Active Substance: BISMUTH SUBSALICYLATE
     Dosage: 262 MG/15 ML
     Route: 065
     Dates: start: 20180604, end: 20180604
  20. ASPIRIN. [Concomitant]
     Active Substance: ASPIRIN
     Dates: start: 20180325
  21. FLEXERIL [Concomitant]
     Active Substance: CYCLOBENZAPRINE HYDROCHLORIDE
     Indication: BACK PAIN
     Dates: start: 2002
  22. BENADRYL [Concomitant]
     Active Substance: DIPHENHYDRAMINE HYDROCHLORIDE
     Indication: CHEMOTHERAPY SIDE EFFECT PROPHYLAXIS
     Dates: start: 20180412
  23. DECADRON [Concomitant]
     Active Substance: DEXAMETHASONE
     Route: 048
     Dates: start: 20180524, end: 20180524
  24. COMPAZINE [Concomitant]
     Active Substance: PROCHLORPERAZINE MALEATE
     Indication: NAUSEA
     Dates: start: 20180412
  25. FAMOTIDINE. [Concomitant]
     Active Substance: FAMOTIDINE
     Route: 065
     Dates: start: 20180604, end: 20180607
  26. PEPCID [Concomitant]
     Active Substance: FAMOTIDINE
     Dates: start: 20180524, end: 20180524
  27. DICLOXACILLIN [Concomitant]
     Active Substance: DICLOXACILLIN
     Indication: NEUTROPENIA
     Dates: start: 20180427, end: 20180507
  28. BEVACIZUMAB. [Suspect]
     Active Substance: BEVACIZUMAB
     Indication: OVARIAN CANCER
     Dosage: DATE OF MOST RECENT DOSE OF BEVACIZUMAB PRIOR TO THE ONSET OF FEVER: 24/MAY/2018 (1100 MG)
     Route: 042
     Dates: start: 20180524
  29. TYLENOL [Concomitant]
     Active Substance: ACETAMINOPHEN
     Dates: start: 20180603, end: 20180603
  30. ZOFRAN [Concomitant]
     Active Substance: ONDANSETRON HYDROCHLORIDE
     Dates: start: 20180524, end: 20180524
  31. COMPAZINE [Concomitant]
     Active Substance: PROCHLORPERAZINE MALEATE
     Indication: CHEMOTHERAPY
     Route: 065
     Dates: start: 20180604, end: 20180607
  32. COMPAZINE [Concomitant]
     Active Substance: PROCHLORPERAZINE MALEATE
     Dates: start: 20180414
  33. PEPCID [Concomitant]
     Active Substance: FAMOTIDINE
     Indication: CHEMOTHERAPY SIDE EFFECT PROPHYLAXIS
     Dates: start: 20180412
  34. ROPINIROLE. [Concomitant]
     Active Substance: ROPINIROLE
     Indication: RESTLESS LEGS SYNDROME
     Dates: start: 20180302
  35. CIPROFLOXACIN. [Concomitant]
     Active Substance: CIPROFLOXACIN
     Indication: NEUTROPENIA
     Dates: start: 20180427, end: 20180507
  36. CARBOPLATIN. [Suspect]
     Active Substance: CARBOPLATIN
     Indication: OVARIAN CANCER
     Dosage: DATE OF MOST RECENT DOSE OF CARBOPLATIN (795.3 MG) PRIOR TO AE ONSET: 24/MAY/2018?(AREA UNDER THE CO
     Route: 042
     Dates: start: 20180412
  37. HEPARIN [Concomitant]
     Active Substance: HEPARIN SODIUM
     Dosage: 100 UNIT/ML, 500 UNITS INJECTION
     Route: 065
     Dates: start: 20180607, end: 20180607
  38. ZOVIRAX [Concomitant]
     Active Substance: ACYCLOVIR
     Route: 065
     Dates: start: 20180606, end: 20180607
  39. BISMATROL [Concomitant]
     Active Substance: BISMUTH SUBSALICYLATE
     Dosage: 262 MG/15 ML
     Route: 065
     Dates: start: 20180604, end: 20180607
  40. BENADRYL [Concomitant]
     Active Substance: DIPHENHYDRAMINE HYDROCHLORIDE
     Route: 042
     Dates: start: 20180524, end: 20180524
  41. OXYCODONE [Concomitant]
     Active Substance: OXYCODONE
     Indication: ABDOMINAL PAIN
     Dates: start: 20180302
  42. PEPTO?BISMOL [Concomitant]
     Active Substance: BISMUTH SUBSALICYLATE
     Indication: GASTROOESOPHAGEAL REFLUX DISEASE
     Dates: start: 20180302
  43. TYLENOL [Concomitant]
     Active Substance: ACETAMINOPHEN
     Indication: PROCEDURAL PAIN
     Dates: start: 20180605, end: 20180607
  44. ZOFRAN [Concomitant]
     Active Substance: ONDANSETRON HYDROCHLORIDE
     Dates: start: 20180412
  45. COLACE [Concomitant]
     Active Substance: DOCUSATE SODIUM
     Dates: start: 20180302
  46. CLARITIN [Concomitant]
     Active Substance: LORATADINE
     Indication: SEASONAL ALLERGY
     Route: 065
     Dates: start: 20180604, end: 20180607
  47. PACLITAXEL. [Suspect]
     Active Substance: PACLITAXEL
     Indication: OVARIAN CANCER
     Dosage: DATE OF MOST RECENT DOSE OF PACLITAXEL (316.7 MG) PRIOR TO TO AE ONSET: 24/MAY/2018
     Route: 042
     Dates: start: 20180412
  48. NACL [Concomitant]
     Active Substance: SODIUM CHLORIDE
     Route: 040
     Dates: start: 20180604, end: 20180604
  49. NACL [Concomitant]
     Active Substance: SODIUM CHLORIDE
     Dosage: 0.9% 1000 ML
     Route: 040
     Dates: start: 20180603, end: 20180604
  50. VANCOCIN [Concomitant]
     Active Substance: VANCOMYCIN HYDROCHLORIDE
     Dosage: 1.25 G IN D5W 250ML
     Route: 065
     Dates: start: 20180604, end: 20180607
  51. VANCOCIN [Concomitant]
     Active Substance: VANCOMYCIN HYDROCHLORIDE
     Dosage: 1.5 G IN D5W 250ML
     Route: 065
     Dates: start: 20180607, end: 20180607
  52. LOVENOX [Concomitant]
     Active Substance: ENOXAPARIN SODIUM
     Indication: ANTICOAGULANT THERAPY
     Route: 065
     Dates: start: 20180604, end: 20180606
  53. ZOFRAN [Concomitant]
     Active Substance: ONDANSETRON HYDROCHLORIDE
     Indication: CHEMOTHERAPY SIDE EFFECT PROPHYLAXIS
     Dates: start: 20180604, end: 20180607
  54. ZOFRAN [Concomitant]
     Active Substance: ONDANSETRON HYDROCHLORIDE
     Dates: start: 20180604, end: 20180607
  55. COLACE [Concomitant]
     Active Substance: DOCUSATE SODIUM
     Indication: CONSTIPATION
     Route: 065
     Dates: start: 20180604, end: 20180607

REACTIONS (1)
  - Pyrexia [Recovered/Resolved]

NARRATIVE: CASE EVENT DATE: 20180603
